FAERS Safety Report 7154266-8 (Version None)
Quarter: 2010Q4

REPORT INFORMATION
  Report Type: 
  Country: None (occurrence: None)
  Receive Date: 20101213
  Receipt Date: 20101210
  Transmission Date: 20110411
  Serious: Yes (Hospitalization, Other)
  Sender: FDA-Public Use
  Company Number: US-PFIZER INC-2010164264

PATIENT
  Sex: Male
  Weight: 22 kg

DRUGS (1)
  1. SOMATROPIN [Suspect]
     Indication: GROWTH HORMONE DEFICIENCY
     Dosage: 1.4 MG, 6X/WEEK
     Route: 058
     Dates: start: 20030801, end: 20050410

REACTIONS (1)
  - TYPE 1 DIABETES MELLITUS [None]
